FAERS Safety Report 7732829-6 (Version None)
Quarter: 2011Q3

REPORT INFORMATION
  Report Type: 
  Country: None (occurrence: None)
  Receive Date: 20110907
  Receipt Date: 20110825
  Transmission Date: 20111222
  Serious: Yes (Hospitalization)
  Sender: FDA-Public Use
  Company Number: FR-RANBAXY-2011RR-47302

PATIENT
  Age: 64 Year
  Sex: Male

DRUGS (11)
  1. ALVESCO [Concomitant]
     Indication: PRODUCT USED FOR UNKNOWN INDICATION
     Dosage: UNK
     Route: 065
  2. SIMVASTATIN [Suspect]
     Indication: HYPERCHOLESTEROLAEMIA
     Dosage: 20 MG/DAY
     Route: 048
     Dates: end: 20110801
  3. PENTASA [Suspect]
     Indication: COLITIS ULCERATIVE
     Dosage: 1 G/ DAY
     Route: 048
     Dates: start: 20110701, end: 20110725
  4. FORMOTEROL FUMARATE [Concomitant]
     Indication: PRODUCT USED FOR UNKNOWN INDICATION
     Dosage: UNK
     Route: 065
  5. PENTASA [Suspect]
     Dosage: 1 G, SINGLE
     Route: 048
     Dates: start: 20110728, end: 20110728
  6. AUGMENTIN '125' [Suspect]
     Indication: LUNG INFECTION
     Dosage: 1 G, TID
     Route: 048
     Dates: start: 20110722, end: 20110726
  7. ACETAMINOPHEN [Concomitant]
     Indication: VIRAL INFECTION
     Dosage: UNK
     Route: 065
     Dates: start: 20110717
  8. RHINOFLUIMUCIL [Concomitant]
     Indication: VIRAL INFECTION
     Dosage: UNK
     Route: 065
     Dates: start: 20110717
  9. HELICIDINE [Concomitant]
     Indication: VIRAL INFECTION
     Dosage: UNK
     Route: 065
     Dates: start: 20110717
  10. LEVOFLOXACIN [Suspect]
     Indication: LUNG INFECTION
     Dosage: 500 MG/ DAY
     Route: 048
     Dates: start: 20110721, end: 20110801
  11. MYOLASTAN [Suspect]
     Indication: MYALGIA
     Dosage: 12.5 MG/ DAY
     Route: 048
     Dates: start: 20110724, end: 20110802

REACTIONS (12)
  - TOXICITY TO VARIOUS AGENTS [None]
  - ARTHRALGIA [None]
  - LEUKOCYTURIA [None]
  - CYTOLYTIC HEPATITIS [None]
  - MYALGIA [None]
  - CHLAMYDIA TEST POSITIVE [None]
  - DRUG HYPERSENSITIVITY [None]
  - RASH ERYTHEMATOUS [None]
  - PYREXIA [None]
  - LUNG INFECTION [None]
  - ANORECTAL DISORDER [None]
  - RECTAL POLYP [None]
